FAERS Safety Report 7131603 (Version 2)
Quarter: 2013Q3

REPORT INFORMATION
  Report Type: Spontaneous
  Country: KR (occurrence: None)
  Receive Date: 20090915
  Receipt Date: 20130709
  Transmission Date: 20140515
  Serious: Yes (Disabling, Other)
  Sender: FDA-Public Use
  Company Number: AUR-APL-2009-00544

PATIENT
  Age: 66 Year
  Sex: Female

DRUGS (1)
  1. CEFAZOLIN [Suspect]
     Indication: PRODUCT USED FOR UNKNOWN INDICATION
     Dosage: 500MG, ONCE, INTRATHECAL 1 X 1 DOSE
     Route: 037

REACTIONS (5)
  - Status epilepticus [None]
  - Dysarthria [None]
  - Dysphagia [None]
  - Cognitive disorder [None]
  - Positron emission tomogram abnormal [None]
